FAERS Safety Report 24902376 (Version 1)
Quarter: 2025Q1

REPORT INFORMATION
  Report Type: Spontaneous
  Country: US (occurrence: US)
  Receive Date: 20250130
  Receipt Date: 20250130
  Transmission Date: 20250408
  Serious: No
  Sender: THE RITEDOSE CORP
  Company Number: US-THE RITEDOSE CORPORATION-2024RIT000141

PATIENT

DRUGS (2)
  1. ALBUTEROL SULFATE [Suspect]
     Active Substance: ALBUTEROL SULFATE
     Indication: Bronchitis
     Route: 065
  2. ALBUTEROL SULFATE [Suspect]
     Active Substance: ALBUTEROL SULFATE
     Indication: Pneumonia

REACTIONS (1)
  - Feeling jittery [Unknown]
